FAERS Safety Report 8904208 (Version 2)
Quarter: 2012Q4

REPORT INFORMATION
  Report Type: Report from Study
  Country: US (occurrence: US)
  Receive Date: 20121112
  Receipt Date: 20121217
  Transmission Date: 20130627
  Serious: Yes (Hospitalization)
  Sender: FDA-Public Use
  Company Number: US-CELGENEUS-163-21880-12110466

PATIENT
  Age: 42 Year
  Sex: Male
  Weight: 87.5 kg

DRUGS (3)
  1. REVLIMID [Suspect]
     Indication: MULTIPLE MYELOMA
     Dosage: 25 Milligram
     Route: 048
     Dates: start: 20121024
  2. CARFILZOMIB [Suspect]
     Indication: MULTIPLE MYELOMA
     Dosage: 36 milligram/sq. meter
     Route: 041
     Dates: start: 20121023
  3. DEXAMETHASONE [Suspect]
     Indication: MULTIPLE MYELOMA
     Dosage: 20 Milligram
     Route: 065
     Dates: start: 20121024

REACTIONS (3)
  - Hiccups [Recovered/Resolved]
  - Vomiting [Recovered/Resolved]
  - Dehydration [Recovered/Resolved]
